FAERS Safety Report 10222365 (Version 1)
Quarter: 2014Q1

REPORT INFORMATION
  Report Type: Spontaneous
  Country: US (occurrence: None)
  Receive Date: 20140306
  Receipt Date: 20140306
  Transmission Date: 20141002
  Serious: Yes (Other)
  Sender: FDA-Public Use
  Company Number: 163-21880-13050261

PATIENT
  Age: 63 Year
  Sex: Male

DRUGS (9)
  1. REVLIMID(LENALIDOMIDE)(10 MILLIGRAM, CAPSULES) [Suspect]
     Indication: PLASMA CELL MYELOMA
     Dosage: 10 MG, 21 IN 21 D, PO
     Route: 048
     Dates: start: 20090801
  2. ASPIRIN EC (ACETYLSALICYLIC ACID) [Concomitant]
  3. CALCIUM (CALCIUM) [Concomitant]
  4. CLARITIN (LORATADINE) [Concomitant]
  5. MULTIVITAMINS (MULTIVITAMINS) [Concomitant]
  6. TRAVATAN (TRAVOPROST) [Concomitant]
  7. TYLENOL 8 HOUR (PARACETAMOL) [Concomitant]
  8. VALTREX (VALACICLOVIR HYDROCHLORIDE) [Concomitant]
  9. ZOMETA (ZOLEDRONIC ACID) [Concomitant]

REACTIONS (1)
  - White blood cell count decreased [None]
